FAERS Safety Report 4591660-3 (Version None)
Quarter: 2005Q1

REPORT INFORMATION
  Report Type: 
  Country: None (occurrence: None)
  Receive Date: 20050218
  Receipt Date: 20050204
  Transmission Date: 20050727
  Serious: Yes (Life-Threatening, Hospitalization, Disabling, Other)
  Sender: FDA-Public Use
  Company Number: 2004095487

PATIENT
  Age: 78 Year
  Sex: Female
  Weight: 64.8644 kg

DRUGS (7)
  1. CELEBREX [Suspect]
     Indication: ARTHRITIS
     Dosage: 400 MG (200 MG,2 IN 1 D)
     Dates: start: 20041013, end: 20040101
  2. ANASTROZOLE (ANASTROZOLE) [Concomitant]
  3. LANSOPRAZOLE [Concomitant]
  4. LISINOPRIL [Concomitant]
  5. HYDROCHLOROTHIAZIDE [Concomitant]
  6. SERETIDE MITE (FLUTICASONE, PROPIONATE, SALMETEROL XINAFOATE) [Concomitant]
  7. ROSUVASTATIN (ROSUVASTATIN) [Concomitant]

REACTIONS (14)
  - ANXIETY [None]
  - BREATH SOUNDS DECREASED [None]
  - CHEST DISCOMFORT [None]
  - CHRONIC OBSTRUCTIVE AIRWAYS DISEASE EXACERBATED [None]
  - DRUG HYPERSENSITIVITY [None]
  - HYPERPLASIA [None]
  - HYPOTENSION [None]
  - NASAL OEDEMA [None]
  - OXYGEN SATURATION DECREASED [None]
  - PARAESTHESIA [None]
  - PROCEDURAL COMPLICATION [None]
  - RESPIRATORY RATE INCREASED [None]
  - TACHYCARDIA [None]
  - UPPER RESPIRATORY TRACT INFECTION [None]
